FAERS Safety Report 7229330-5 (Version None)
Quarter: 2011Q1

REPORT INFORMATION
  Report Type: 
  Country: None (occurrence: None)
  Receive Date: 20110117
  Receipt Date: 20110112
  Transmission Date: 20110831
  Serious: Yes (Hospitalization)
  Sender: FDA-Public Use
  Company Number: FR-SANOFI-AVENTIS-2011SA001989

PATIENT
  Age: 25 Year
  Sex: Male

DRUGS (7)
  1. HUMALOG [Suspect]
     Dosage: 8 TO 10 IU
     Route: 058
     Dates: start: 20101001
  2. FUCIDINE [Suspect]
     Indication: INFECTION
     Route: 061
     Dates: start: 20101027, end: 20101105
  3. ESOMEPRAZOLE [Suspect]
     Route: 065
  4. OFLOCET [Suspect]
     Indication: INFECTION
     Route: 048
     Dates: start: 20101027, end: 20101103
  5. LANTUS [Suspect]
     Route: 058
     Dates: end: 20101001
  6. LANTUS [Suspect]
     Route: 058
     Dates: start: 20101001
  7. LOVENOX [Suspect]
     Route: 058

REACTIONS (1)
  - NEUTROPENIA [None]
